FAERS Safety Report 7885459-X (Version None)
Quarter: 2011Q4

REPORT INFORMATION
  Report Type: 
  Country: None (occurrence: None)
  Receive Date: 20111102
  Receipt Date: 20111024
  Transmission Date: 20120403
  Serious: Yes (Other)
  Sender: FDA-Public Use
  Company Number: US-CELGENEUS-163-21880-11102725

PATIENT
  Sex: Male

DRUGS (7)
  1. REVLIMID [Suspect]
     Dosage: 15 MILLIGRAM
     Route: 048
     Dates: start: 20110622, end: 20110101
  2. EFFEXOR [Concomitant]
     Route: 065
  3. METFORMIN HCL [Concomitant]
     Route: 065
  4. VITAMIN B COMPLEX CAP [Concomitant]
     Route: 065
  5. MULTIPLE VITAMINS [Concomitant]
     Route: 065
  6. INSULIN [Concomitant]
     Route: 065
  7. DEXAMETHASONE [Concomitant]
     Route: 065

REACTIONS (1)
  - DIABETES MELLITUS [None]
